FAERS Safety Report 7216099-3 (Version None)
Quarter: 2011Q1

REPORT INFORMATION
  Report Type: 
  Country: None (occurrence: None)
  Receive Date: 20110107
  Receipt Date: 20100319
  Transmission Date: 20110831
  Serious: Yes (Other)
  Sender: FDA-Public Use
  Company Number: FR-CEPHALON-2009010717

PATIENT
  Sex: Male

DRUGS (2)
  1. MODAFINIL [Suspect]
     Route: 048
     Dates: start: 20090918, end: 20090918
  2. MODAFINIL [Suspect]
     Indication: NARCOLEPSY
     Route: 048
     Dates: start: 20090101

REACTIONS (6)
  - AGGRESSION [None]
  - DRUG INEFFECTIVE [None]
  - SUICIDAL IDEATION [None]
  - FEELING GUILTY [None]
  - AGITATION [None]
  - IRRITABILITY [None]
